FAERS Safety Report 22231645 (Version 2)
Quarter: 2023Q2

REPORT INFORMATION
  Report Type: Spontaneous
  Country: US (occurrence: US)
  Receive Date: 20230420
  Receipt Date: 20230609
  Transmission Date: 20230721
  Serious: No
  Sender: FDA-Public Use
  Company Number: US-JNJFOC-20230439536

PATIENT
  Age: 42 Year
  Sex: Male

DRUGS (1)
  1. TREMFYA [Suspect]
     Active Substance: GUSELKUMAB
     Indication: Psoriasis
     Route: 058
     Dates: start: 202210

REACTIONS (3)
  - Skin discolouration [Recovering/Resolving]
  - Oropharyngeal pain [Unknown]
  - Cough [Unknown]

NARRATIVE: CASE EVENT DATE: 20230315
